FAERS Safety Report 8950804 (Version 1)
Quarter: 2012Q4

REPORT INFORMATION
  Report Type: Spontaneous
  Country: FR (occurrence: None)
  Receive Date: 20121128
  Receipt Date: 20121128
  Transmission Date: 20130627
  Serious: Yes (Death, Hospitalization)
  Sender: FDA-Public Use
  Company Number: 2012-0436

PATIENT
  Age: 83 Year
  Sex: Male

DRUGS (6)
  1. CARFILZOMIB [Suspect]
     Indication: MULTIPLE MYELOMA
     Dosage: (Cycle 2, days 29 and 30)
     Route: 042
     Dates: start: 20111221, end: 20111222
  2. CARFILZOMIB [Suspect]
     Indication: MULTIPLE MYELOMA
     Dates: start: 20120515, end: 20120613
  3. MELPHALAN [Suspect]
     Indication: MULTIPLE MYELOMA
     Dosage: (Cycle 2, Days 1-4)
     Dates: start: 20111123, end: 20111126
  4. MELPHALAN [Suspect]
     Indication: MULTIPLE MYELOMA
     Dates: start: 20120515, end: 20120518
  5. PREDNISONE [Suspect]
     Indication: MULTIPLE MYELOMA
     Dosage: (Cycle 2, Days 1-4)
     Dates: start: 20111123, end: 20111126
  6. PREDNISONE [Suspect]
     Indication: MULTIPLE MYELOMA
     Dates: start: 20120515, end: 20120518

REACTIONS (2)
  - Atrial fibrillation [None]
  - Respiratory distress [None]
